FAERS Safety Report 13290857 (Version 1)
Quarter: 2017Q1

REPORT INFORMATION
  Report Type: Spontaneous
  Country: US (occurrence: US)
  Receive Date: 20170302
  Receipt Date: 20170302
  Transmission Date: 20170428
  Serious: Yes (Hospitalization, Other)
  Sender: FDA-Public Use
  Company Number: US-OTSUKA-2017_004408

PATIENT
  Sex: Male

DRUGS (3)
  1. NUEDEXTA [Suspect]
     Active Substance: DEXTROMETHORPHAN HYDROBROMIDE\QUINIDINE SULFATE
     Indication: PSYCHIATRIC SYMPTOM
  2. NUEDEXTA [Suspect]
     Active Substance: DEXTROMETHORPHAN HYDROBROMIDE\QUINIDINE SULFATE
     Indication: ANXIETY
  3. NUEDEXTA [Suspect]
     Active Substance: DEXTROMETHORPHAN HYDROBROMIDE\QUINIDINE SULFATE
     Indication: NERVOUSNESS
     Dosage: 10 MG, QD
     Route: 065
     Dates: start: 201701, end: 2017

REACTIONS (4)
  - Drug dispensing error [Unknown]
  - Wrong drug administered [Unknown]
  - Product use issue [Unknown]
  - Cerebrovascular accident [Unknown]
